FAERS Safety Report 5154590-4 (Version None)
Quarter: 2006Q4

REPORT INFORMATION
  Report Type: 
  Country: None (occurrence: None)
  Receive Date: 20061114
  Receipt Date: 20061023
  Transmission Date: 20070319
  Serious: Yes (Hospitalization)
  Sender: FDA-Public Use
  Company Number: 2006SP000293

PATIENT
  Age: 54 Year
  Sex: Male
  Weight: 62 kg

DRUGS (2)
  1. PEG-INTRON [Suspect]
     Indication: HEPATITIS C
     Dosage: 100 MCG; QW; SC
     Route: 058
     Dates: start: 20060811, end: 20060811
  2. REBETOL [Suspect]
     Indication: HEPATITIS C
     Dosage: 800 MG; QD; PO
     Route: 048
     Dates: start: 20060811, end: 20060818

REACTIONS (3)
  - EXTRADURAL HAEMATOMA [None]
  - HYPOAESTHESIA [None]
  - SENSORY DISTURBANCE [None]
